FAERS Safety Report 4477003-4 (Version None)
Quarter: 2004Q4

REPORT INFORMATION
  Report Type: 
  Country: None (occurrence: None)
  Receive Date: 20041018
  Receipt Date: 20031208
  Transmission Date: 20050328
  Serious: Yes (Hospitalization)
  Sender: FDA-Public Use
  Company Number: US-ABBOTT-03P-163-0244852-00

PATIENT
  Sex: Male
  Weight: 51.3 kg

DRUGS (19)
  1. KALETRA [Suspect]
     Indication: DRUG USE FOR UNKNOWN INDICATION
     Dates: start: 20031001, end: 20031011
  2. KALETRA [Suspect]
     Indication: DRUG USE FOR UNKNOWN INDICATION
     Dates: start: 20031011, end: 20031016
  3. RITONAVIR SOFT GELATIN CAPSULES [Suspect]
     Indication: HIV INFECTION
     Route: 048
     Dates: start: 20031001, end: 20031016
  4. LACTULOSE [Suspect]
     Indication: CONSTIPATION
     Route: 048
     Dates: start: 20031011, end: 20031011
  5. T20 [Concomitant]
  6. TENOFOVIR [Concomitant]
  7. EMTRICITABINE [Concomitant]
  8. TESTOSTERONE [Concomitant]
  9. AZITHROMYCIN [Concomitant]
  10. METOCLOPRAMIDE [Concomitant]
  11. DARBEPOETIN ALFA [Concomitant]
  12. CHLORPROMAZINE HYDROCHLORIDE [Concomitant]
  13. CHROMAGEN FORTE [Concomitant]
  14. CARBAMAZEPINE [Concomitant]
  15. AMITRIPTYLINE HCL [Concomitant]
  16. METHADONE HCL [Concomitant]
  17. RABEPRAZOLE SODIUM [Concomitant]
  18. LACTULOSE [Concomitant]
     Route: 048
     Dates: start: 20031011, end: 20031011
  19. BACTRIM [Concomitant]

REACTIONS (13)
  - CACHEXIA [None]
  - CONSTIPATION [None]
  - CYTOMEGALOVIRUS GASTRITIS [None]
  - CYTOMEGALOVIRUS OESOPHAGITIS [None]
  - DEHYDRATION [None]
  - DIARRHOEA [None]
  - HYPOXIA [None]
  - LUNG INFECTION PSEUDOMONAL [None]
  - MALNUTRITION [None]
  - ODYNOPHAGIA [None]
  - OESOPHAGEAL CANDIDIASIS [None]
  - PSEUDOMONAL BACTERAEMIA [None]
  - SOMNOLENCE [None]
